FAERS Safety Report 4454518-6 (Version None)
Quarter: 2004Q3

REPORT INFORMATION
  Report Type: 
  Country: None (occurrence: None)
  Receive Date: 20040921
  Receipt Date: 20040909
  Transmission Date: 20050211
  Serious: Yes (Hospitalization, Other)
  Sender: FDA-Public Use
  Company Number: DE-JNJFOC-20040903306

PATIENT
  Sex: Female

DRUGS (2)
  1. SEMPERA [Suspect]
     Indication: ONYCHOMYCOSIS
     Dosage: 3  CYCLES ADMINISTERED, LAST CYCLE STARTED ON 09-JUL-2004.
     Route: 049
  2. L-THYROXIN [Concomitant]
     Indication: HYPOTHYROIDISM
     Route: 049

REACTIONS (3)
  - ANOREXIA [None]
  - CHEST PAIN [None]
  - NAUSEA [None]
